FAERS Safety Report 4806441-2 (Version None)
Quarter: 2005Q4

REPORT INFORMATION
  Report Type: 
  Country: None (occurrence: None)
  Receive Date: 20051019
  Receipt Date: 20051012
  Transmission Date: 20060501
  Serious: Yes (Other)
  Sender: FDA-Public Use
  Company Number: 200514104BCC

PATIENT
  Age: 71 Year
  Sex: Female
  Weight: 54.4316 kg

DRUGS (6)
  1. ALEVE (CAPLET) [Suspect]
     Indication: FIBROMYALGIA
     Dosage: 220 MG, BID, ORAL
     Route: 048
     Dates: start: 20050401, end: 20051001
  2. PREDNISONE [Concomitant]
  3. DITROPAN /USA/ [Concomitant]
  4. ANMILORIDE [Concomitant]
  5. CALCIUM GLUCONATE [Concomitant]
  6. SYNTHROID [Concomitant]

REACTIONS (3)
  - BLOOD PRESSURE INCREASED [None]
  - INCORRECT DRUG ADMINISTRATION DURATION [None]
  - OFF LABEL USE [None]
